FAERS Safety Report 8329174-7 (Version None)
Quarter: 2012Q2

REPORT INFORMATION
  Report Type: 
  Country: None (occurrence: None)
  Receive Date: 20120502
  Receipt Date: 20120418
  Transmission Date: 20120825
  Serious: Yes (Other)
  Sender: FDA-Public Use
  Company Number: CN-JNJFOC-20110501899

PATIENT
  Sex: Male
  Weight: 60 kg

DRUGS (1)
  1. SPORANOX [Suspect]
     Indication: PRODUCT USED FOR UNKNOWN INDICATION
     Route: 041
     Dates: start: 20110316, end: 20110505

REACTIONS (4)
  - ASTHMA [None]
  - LIQUID PRODUCT PHYSICAL ISSUE [None]
  - DYSPHORIA [None]
  - INFUSION RELATED REACTION [None]
